FAERS Safety Report 8576958-6 (Version None)
Quarter: 2012Q3

REPORT INFORMATION
  Report Type: 
  Country: None (occurrence: None)
  Receive Date: 20120807
  Receipt Date: 20120730
  Transmission Date: 20120928
  Serious: Yes (Life-Threatening, Hospitalization)
  Sender: FDA-Public Use
  Company Number: GB-TEVA-351777ISR

PATIENT
  Age: 72 Year
  Sex: Female

DRUGS (5)
  1. ATENOLOL [Suspect]
     Dosage: IN THE MORNING
     Route: 048
  2. ADCAL-D3 [Concomitant]
     Dosage: 750MG/200UNIT CAPLET
     Route: 048
  3. PERINDOPRIL ERBUMINE [Concomitant]
     Route: 048
  4. DILTIAZEM HYDROCHLORIDE [Suspect]
     Dosage: 300MG OM
     Route: 048
  5. ATORVASTATIN [Concomitant]
     Dosage: NOCTE
     Route: 048

REACTIONS (3)
  - CARDIAC ARREST [None]
  - SYNCOPE [None]
  - ATRIOVENTRICULAR BLOCK COMPLETE [None]
